FAERS Safety Report 4602818-9 (Version None)
Quarter: 2005Q1

REPORT INFORMATION
  Report Type: 
  Country: None (occurrence: None)
  Receive Date: 20050307
  Receipt Date: 20050213
  Transmission Date: 20050727
  Serious: Yes (Other)
  Sender: FDA-Public Use
  Company Number: 2005037408

PATIENT
  Age: 17 Year
  Sex: Female
  Weight: 75.7507 kg

DRUGS (1)
  1. DEPO-PROVERA [Suspect]
     Indication: ABDOMINAL PAIN
     Dosage: 150 MG (150 MG, EVERY 3 MONTHS/FIRST INJECTION), INTRAMUSCULAR
     Route: 030
     Dates: start: 20040714, end: 20040714

REACTIONS (2)
  - ALOPECIA [None]
  - INFECTIOUS MONONUCLEOSIS [None]
